FAERS Safety Report 7483295-X (Version None)
Quarter: 2011Q2

REPORT INFORMATION
  Report Type: 
  Country: None (occurrence: None)
  Receive Date: 20110509
  Receipt Date: 20110424
  Transmission Date: 20111010
  Serious: Yes (Other)
  Sender: FDA-Public Use
  Company Number: 032071

PATIENT
  Sex: Male

DRUGS (1)
  1. CIMZIA [Suspect]
     Indication: CROHN'S DISEASE
     Dosage: (FORM : PFS SUBCUTANEOUS)
     Route: 058
     Dates: start: 20101018

REACTIONS (1)
  - PANCREATIC CYST [None]
